FAERS Safety Report 9717524 (Version 1)
Quarter: 2013Q4

REPORT INFORMATION
  Report Type: Spontaneous
  Country: US (occurrence: US)
  Receive Date: 20131127
  Receipt Date: 20131127
  Transmission Date: 20140711
  Serious: No
  Sender: FDA-Public Use
  Company Number: US-GILEAD-2009-0020501

PATIENT
  Sex: Female

DRUGS (5)
  1. LETAIRIS [Suspect]
     Indication: PULMONARY ARTERIAL HYPERTENSION
     Route: 048
  2. WARFARIN [Concomitant]
  3. HCTZ/TRIAMTERENE [Concomitant]
  4. NORVASC [Concomitant]
  5. DIOVAN HCT [Concomitant]

REACTIONS (4)
  - Fatigue [Unknown]
  - Nasal congestion [Unknown]
  - Oedema peripheral [Unknown]
  - Oedema peripheral [Unknown]
